FAERS Safety Report 8177728-3 (Version None)
Quarter: 2012Q1

REPORT INFORMATION
  Report Type: 
  Country: None (occurrence: None)
  Receive Date: 20120301
  Receipt Date: 20120227
  Transmission Date: 20120608
  Serious: Yes (Death)
  Sender: FDA-Public Use
  Company Number: PHEH2012US004856

PATIENT

DRUGS (1)
  1. FANAPT [Suspect]
     Dosage: UNK UKN, UNK

REACTIONS (1)
  - DEATH [None]
